FAERS Safety Report 6805801-8 (Version None)
Quarter: 2010Q2

REPORT INFORMATION
  Report Type: 
  Country: None (occurrence: None)
  Receive Date: 20100629
  Receipt Date: 20071015
  Transmission Date: 20101027
  Serious: No
  Sender: FDA-Public Use
  Company Number: US-PFIZER INC-2007087085

PATIENT
  Age: 26 Year
  Sex: Male
  Weight: 95.3 kg

DRUGS (1)
  1. VIAGRA [Suspect]
     Dates: start: 20071015

REACTIONS (4)
  - GENITAL DISCOMFORT [None]
  - GENITAL PAIN [None]
  - MEDICATION ERROR [None]
  - OEDEMA GENITAL [None]
